FAERS Safety Report 23313476 (Version 1)
Quarter: 2023Q4

REPORT INFORMATION
  Report Type: Spontaneous
  Country: US (occurrence: None)
  Receive Date: 20231218
  Receipt Date: 20231218
  Transmission Date: 20240110
  Serious: Yes (Hospitalization)
  Sender: FDA-Public Use
  Company Number: None

PATIENT
  Sex: Female

DRUGS (11)
  1. MYCOPHENOLATE MOFETIL [Suspect]
     Active Substance: MYCOPHENOLATE MOFETIL
  2. ACYCLOVIR TAB 800MG [Concomitant]
  3. ALPRAZOLMA TAB 0.25MG [Concomitant]
  4. ATENOLOL TAB 50MG [Concomitant]
  5. AZATHIOPRINE TAB 50MG [Concomitant]
  6. CLONIDINE TAB 0.5MG [Concomitant]
  7. CYANOCOBALAM INJ 100MCG [Concomitant]
  8. FUROSEMID TAB 40MG [Concomitant]
  9. PEG-3350/KCL SOL/SODIUM [Concomitant]
  10. SPIRONOLACT TAB 50MG [Concomitant]
  11. TACROLIMUS 1MG CAP [Concomitant]

REACTIONS (2)
  - Vomiting [None]
  - Diarrhoea [None]
